FAERS Safety Report 8356908-8 (Version None)
Quarter: 2012Q2

REPORT INFORMATION
  Report Type: 
  Country: None (occurrence: None)
  Receive Date: 20120514
  Receipt Date: 20120508
  Transmission Date: 20120825
  Serious: Yes (Hospitalization, Other)
  Sender: FDA-Public Use
  Company Number: CA-JNJFOC-20120110503

PATIENT
  Sex: Male
  Weight: 79.5 kg

DRUGS (6)
  1. FOLIC ACID [Concomitant]
     Route: 065
  2. REMICADE [Suspect]
     Indication: RHEUMATOID ARTHRITIS
     Route: 042
     Dates: start: 20081029, end: 20111120
  3. CRESTOR [Concomitant]
     Route: 065
  4. METHOTREXATE [Concomitant]
     Route: 065
  5. METFORMIN HCL [Concomitant]
     Route: 065
  6. METOPROLOL TARTRATE [Concomitant]
     Route: 065

REACTIONS (3)
  - PLEURISY [None]
  - DEEP VEIN THROMBOSIS [None]
  - MASS [None]
